FAERS Safety Report 8927744 (Version 1)
Quarter: 2012Q4

REPORT INFORMATION
  Report Type: 
  Country: AU (occurrence: AU)
  Receive Date: 20121126
  Receipt Date: 20121126
  Transmission Date: 20130627
  Serious: Yes (Death)
  Sender: FDA-Public Use
  Company Number: AU-ROXANE LABORATORIES, INC.-2012-BI-01033GD

PATIENT
  Age: 35 Year
  Sex: Female

DRUGS (4)
  1. CODEINE [Suspect]
  2. PHENOBARBITONE [Suspect]
  3. NORDIAZEPAM [Suspect]
  4. TRAMADOL [Suspect]

REACTIONS (3)
  - Toxicity to various agents [Fatal]
  - Pneumonia [Fatal]
  - Cachexia [Fatal]
